FAERS Safety Report 24274704 (Version 2)
Quarter: 2024Q3

REPORT INFORMATION
  Report Type: Spontaneous
  Country: CA (occurrence: CA)
  Receive Date: 20240902
  Receipt Date: 20240906
  Transmission Date: 20241017
  Serious: No
  Sender: PFIZER
  Company Number: CA-PFIZER INC-202201360528

PATIENT
  Age: 38 Year
  Sex: Male
  Weight: 104 kg

DRUGS (2)
  1. ABRILADA [Suspect]
     Active Substance: ADALIMUMAB-AFZB
     Indication: Sarcoidosis
     Dosage: EVERY 2 WEEKS
     Route: 058
     Dates: start: 20230121
  2. ABRILADA [Suspect]
     Active Substance: ADALIMUMAB-AFZB
     Dosage: EVERY 2 WEEKS
     Route: 058
     Dates: start: 2023

REACTIONS (5)
  - Off label use [Unknown]
  - Loss of personal independence in daily activities [Unknown]
  - Lung disorder [Unknown]
  - Fatigue [Unknown]
  - Rales [Unknown]

NARRATIVE: CASE EVENT DATE: 20230121
